FAERS Safety Report 15486872 (Version 1)
Quarter: 2018Q4

REPORT INFORMATION
  Report Type: Spontaneous
  Country: NL (occurrence: NL)
  Receive Date: 20181011
  Receipt Date: 20181011
  Transmission Date: 20190205
  Serious: Yes (Life-Threatening, Hospitalization)
  Sender: FDA-Public Use
  Company Number: NL-TEVA-2018-NL-961426

PATIENT
  Age: 61 Year
  Sex: Female

DRUGS (7)
  1. NAPROXEN. [Suspect]
     Active Substance: NAPROXEN
     Indication: INTENTIONAL OVERDOSE
     Dosage: 20 TABLETS
     Route: 048
  2. CLEMASTINE [Suspect]
     Active Substance: CLEMASTINE
     Indication: INTENTIONAL OVERDOSE
     Dosage: 5 TABLETS
     Route: 048
  3. BROMAZEPAM [Suspect]
     Active Substance: BROMAZEPAM
     Indication: INTENTIONAL OVERDOSE
     Dosage: 90 TABLETS
     Route: 048
  4. ZOLPIDEM [Suspect]
     Active Substance: ZOLPIDEM\ZOLPIDEM TARTRATE
     Indication: INTENTIONAL OVERDOSE
     Dosage: 40 TABLETS
     Route: 048
  5. MAGNESIUM SULFATE. [Suspect]
     Active Substance: MAGNESIUM SULFATE
     Indication: TORSADE DE POINTES
     Dosage: CONTINUED FOR THE REMAINING NIGHT WITH CONTINUOUS INFUSION AT 1 G/HOUR
     Route: 042
  6. FLUOXETINE [Suspect]
     Active Substance: FLUOXETINE HYDROCHLORIDE
     Indication: INTENTIONAL OVERDOSE
     Dosage: 139 TABLETS
     Route: 048
  7. RISPERIDONE. [Interacting]
     Active Substance: RISPERIDONE
     Indication: INTENTIONAL OVERDOSE
     Dosage: 6 TABLETS
     Route: 048

REACTIONS (15)
  - Intentional overdose [Recovering/Resolving]
  - Hypermagnesaemia [Recovering/Resolving]
  - Torsade de pointes [Recovered/Resolved]
  - Leukocytosis [Recovering/Resolving]
  - Muscular weakness [Recovering/Resolving]
  - Hypocalcaemia [Recovering/Resolving]
  - Electrocardiogram QT prolonged [Recovering/Resolving]
  - Circulatory collapse [Recovered/Resolved]
  - Fall [Recovering/Resolving]
  - Toxicity to various agents [Recovering/Resolving]
  - Somnolence [Recovering/Resolving]
  - Coordination abnormal [Recovering/Resolving]
  - Drug interaction [Recovering/Resolving]
  - Cardiac output decreased [Recovered/Resolved]
  - Microcytic anaemia [Recovering/Resolving]
